FAERS Safety Report 20530706 (Version 1)
Quarter: 2022Q1

REPORT INFORMATION
  Report Type: Spontaneous
  Country: US (occurrence: US)
  Receive Date: 20220301
  Receipt Date: 20220301
  Transmission Date: 20220423
  Serious: Yes (Other)
  Sender: FDA-Public Use
  Company Number: US-NOVARTISPH-NVSC2022US047830

PATIENT
  Age: 57 Year
  Sex: Female

DRUGS (2)
  1. RANITIDINE [Suspect]
     Active Substance: RANITIDINE
     Indication: Gastrooesophageal reflux disease
     Dosage: 150 MG  ,,DAILY,USED INTERCHANGEABLY WITH ZANTAC
     Route: 048
     Dates: start: 200501, end: 201712
  2. RANITIDINE [Suspect]
     Active Substance: RANITIDINE
     Indication: Gastrooesophageal reflux disease
     Dosage: 150 MG  ,,DAILY,USED INTERCHANGEABLY WITH ZANTAC
     Route: 048
     Dates: start: 200501, end: 201712

REACTIONS (2)
  - Pancreatic carcinoma [Recovered/Resolved]
  - Incorrect dose administered [Unknown]

NARRATIVE: CASE EVENT DATE: 20191201
